FAERS Safety Report 5962844-4 (Version None)
Quarter: 2008Q4

REPORT INFORMATION
  Report Type: 
  Country: None (occurrence: None)
  Receive Date: 20081124
  Receipt Date: 20081022
  Transmission Date: 20090506
  Serious: No
  Sender: FDA-Public Use
  Company Number: US-BAYER-200836490NA

PATIENT
  Sex: Female

DRUGS (1)
  1. AVELOX [Suspect]
     Indication: INFECTION

REACTIONS (4)
  - ARTHRALGIA [None]
  - DERMATITIS ALLERGIC [None]
  - MYALGIA [None]
  - RASH [None]
